FAERS Safety Report 8937504 (Version 3)
Quarter: 2013Q1

REPORT INFORMATION
  Report Type: Spontaneous
  Country: JP (occurrence: None)
  Receive Date: 20121121
  Receipt Date: 20130305
  Transmission Date: 20140127
  Serious: Yes (Hospitalization)
  Sender: FDA-Public Use
  Company Number: ABR_00702_2012

PATIENT
  Age: 82 Year
  Sex: Female

DRUGS (2)
  1. ERYTHROMYCIN (ERYTHROMYCIN) [Suspect]
     Indication: PRODUCT USED FOR UNKNOWN INDICATION
  2. VASOSTIGMIN(NEOSTIGMINE BROMIDE) [Suspect]
     Indication: PRODUCT USED FOR UNKNOWN INDICATION

REACTIONS (3)
  - Loss of consciousness [None]
  - Salivary hypersecretion [None]
  - Altered state of consciousness [None]
